FAERS Safety Report 7148150-3 (Version None)
Quarter: 2010Q4

REPORT INFORMATION
  Report Type: 
  Country: None (occurrence: None)
  Receive Date: 20101207
  Receipt Date: 20101207
  Transmission Date: 20110411
  Serious: Yes (Hospitalization)
  Sender: FDA-Public Use
  Company Number: None

PATIENT
  Age: 63 Year
  Sex: Male
  Weight: 71 kg

DRUGS (2)
  1. CARBAMAZEPINE [Suspect]
     Indication: CONVULSION
     Dosage: 400 MG BID PO ; 100 MG PO
     Route: 048
     Dates: start: 20101005, end: 20101122
  2. CARBAMAZEPINE [Suspect]
     Indication: CONVULSION
     Dosage: 400 MG BID PO ; 100 MG PO
     Route: 048
     Dates: start: 20101101, end: 20101201

REACTIONS (5)
  - CHILLS [None]
  - DIZZINESS [None]
  - HALLUCINATION [None]
  - HYPOPHAGIA [None]
  - NAUSEA [None]
